FAERS Safety Report 22097304 (Version 2)
Quarter: 2024Q3

REPORT INFORMATION
  Report Type: Spontaneous
  Country: JP (occurrence: JP)
  Receive Date: 20230315
  Receipt Date: 20240710
  Transmission Date: 20241017
  Serious: Yes (Other)
  Sender: AMGEN
  Company Number: JP-AMGEN-JPNSP2023041577

PATIENT
  Age: 39 Year
  Sex: Male

DRUGS (4)
  1. BLINCYTO [Suspect]
     Active Substance: BLINATUMOMAB
     Indication: Philadelphia positive acute lymphocytic leukaemia
     Dosage: UNK
     Route: 065
  2. PONATINIB [Concomitant]
     Active Substance: PONATINIB
     Indication: Philadelphia positive acute lymphocytic leukaemia
     Dosage: 45 MILLIGRAM
     Route: 065
  3. PONATINIB [Concomitant]
     Active Substance: PONATINIB
     Dosage: 15 MILLIGRAM
     Route: 065
  4. INOTUZUMAB OZOGAMICIN [Concomitant]
     Active Substance: INOTUZUMAB OZOGAMICIN
     Indication: Philadelphia positive acute lymphocytic leukaemia
     Route: 065

REACTIONS (1)
  - Philadelphia positive acute lymphocytic leukaemia [Recovered/Resolved]
